FAERS Safety Report 20883976 (Version 3)
Quarter: 2022Q4

REPORT INFORMATION
  Report Type: Spontaneous
  Country: US (occurrence: US)
  Receive Date: 20220527
  Receipt Date: 20221021
  Transmission Date: 20230112
  Serious: No
  Sender: FDA-Public Use
  Company Number: US-PFIZER INC-202200766076

PATIENT
  Age: 70 Year
  Sex: Female
  Weight: 75.75 kg

DRUGS (11)
  1. IBRANCE [Suspect]
     Active Substance: PALBOCICLIB
     Indication: Breast cancer female
     Dosage: 100 MG, CYCLIC(THREE WEEKS ON, 1 WEEK OFF)
     Route: 048
     Dates: start: 202203
  2. IBRANCE [Suspect]
     Active Substance: PALBOCICLIB
     Dosage: UNK
  3. LOSARTAN [Concomitant]
     Active Substance: LOSARTAN
     Indication: Hypertension
     Dosage: 100 MG, DAILY
     Route: 048
  4. METFORMIN [Concomitant]
     Active Substance: METFORMIN HYDROCHLORIDE
     Indication: Diabetes mellitus
     Dosage: 500 MG, 2X/DAY
     Route: 048
  5. ASPIRIN [Concomitant]
     Active Substance: ASPIRIN
     Indication: Disease risk factor
     Dosage: 81 MG
  6. LETROZOLE [Concomitant]
     Active Substance: LETROZOLE
     Indication: Breast cancer
     Dosage: 2.5 MG, DAILY
     Route: 048
  7. SIMVASTATIN [Concomitant]
     Active Substance: SIMVASTATIN
     Dosage: 10 MG, DAILY
     Route: 048
  8. AMLODIPINE [Concomitant]
     Active Substance: AMLODIPINE BESYLATE
     Dosage: UNK
  9. QUINIDINE [Concomitant]
     Active Substance: QUINIDINE
     Dosage: UNK
  10. CETIRIZINE [Concomitant]
     Active Substance: CETIRIZINE HYDROCHLORIDE
     Indication: Hypersensitivity
     Dosage: UNK
  11. GABAPENTIN [Concomitant]
     Active Substance: GABAPENTIN
     Dosage: UNK

REACTIONS (4)
  - Fatigue [Not Recovered/Not Resolved]
  - Breast pain [Unknown]
  - Breast tenderness [Unknown]
  - Tenderness [Unknown]

NARRATIVE: CASE EVENT DATE: 20220101
